FAERS Safety Report 10272488 (Version 1)
Quarter: 2014Q2

REPORT INFORMATION
  Report Type: Spontaneous
  Country: US (occurrence: None)
  Receive Date: 20140627
  Receipt Date: 20140627
  Transmission Date: 20141212
  Serious: Yes (Hospitalization)
  Sender: FDA-Public Use
  Company Number: None

PATIENT
  Age: 92 Year
  Sex: Female
  Weight: 53.7 kg

DRUGS (2)
  1. CARBOPLATIN [Suspect]
     Dosage: AUC=4
  2. PACLITAXEL (TAXOL) [Suspect]

REACTIONS (6)
  - Fall [None]
  - Laceration [None]
  - Loss of consciousness [None]
  - Syncope [None]
  - Haemoglobin decreased [None]
  - Tooth fracture [None]
